FAERS Safety Report 9343657 (Version 1)
Quarter: 2013Q2

REPORT INFORMATION
  Report Type: Spontaneous
  Country: RU (occurrence: RU)
  Receive Date: 20130612
  Receipt Date: 20130612
  Transmission Date: 20140414
  Serious: Yes (Disabling, Other)
  Sender: FDA-Public Use
  Company Number: RU-BAYER-2013-071927

PATIENT
  Age: 24 Year
  Sex: Male

DRUGS (1)
  1. BETAFERON [Suspect]
     Dosage: UNK
     Dates: start: 2010

REACTIONS (2)
  - Movement disorder [Recovered/Resolved]
  - Body temperature increased [Recovered/Resolved]
